FAERS Safety Report 23297528 (Version 1)
Quarter: 2023Q4

REPORT INFORMATION
  Report Type: Spontaneous
  Country: US (occurrence: US)
  Receive Date: 20231214
  Receipt Date: 20231214
  Transmission Date: 20240109
  Serious: Yes (Hospitalization, Other)
  Sender: FDA-Public Use
  Company Number: US-AMGEN-USASP2023220326

PATIENT

DRUGS (4)
  1. PROCRIT [Suspect]
     Active Substance: ERYTHROPOIETIN
     Indication: Product used for unknown indication
     Dosage: UNK
     Route: 048
  2. OXBRYTA [Suspect]
     Active Substance: VOXELOTOR
     Indication: Prophylaxis
     Dosage: 500 MILLIGRAM, BY MOUTH TWICE A DAY
     Route: 065
     Dates: start: 20220518
  3. FOLIC ACID [Concomitant]
     Active Substance: FOLIC ACID
     Dosage: 1 MILLIGRAM, TAKES ONE EVERYDAY
  4. HYDROXYUREA [Concomitant]
     Active Substance: HYDROXYUREA
     Indication: Product used for unknown indication

REACTIONS (4)
  - White blood cell count decreased [Unknown]
  - Decreased immune responsiveness [Unknown]
  - Contusion [Unknown]
  - Induration [Unknown]

NARRATIVE: CASE EVENT DATE: 20220101
